FAERS Safety Report 9133230 (Version 1)
Quarter: 2013Q1

REPORT INFORMATION
  Report Type: Spontaneous
  Country: US (occurrence: US)
  Receive Date: 20130126
  Receipt Date: 20130126
  Transmission Date: 20140127
  Serious: Yes (Other)
  Sender: FDA-Public Use
  Company Number: US-MERCK-1301USA011182

PATIENT
  Age: 40 Year
  Sex: Male

DRUGS (1)
  1. PEGINTRON [Suspect]
     Indication: CHRONIC HEPATITIS C
     Dosage: 120 MICROGRAM, QW
     Route: 058
     Dates: start: 20120906

REACTIONS (1)
  - Abdominal pain upper [Unknown]
